FAERS Safety Report 5113521-3 (Version None)
Quarter: 2006Q3

REPORT INFORMATION
  Report Type: 
  Country: None (occurrence: None)
  Receive Date: 20060921
  Receipt Date: 20060830
  Transmission Date: 20061208
  Serious: Yes (Hospitalization, Other)
  Sender: FDA-Public Use
  Company Number: 2006108503

PATIENT
  Age: 46 Year
  Sex: Male
  Weight: 90.7194 kg

DRUGS (2)
  1. BEXTRA [Suspect]
     Indication: INTERVERTEBRAL DISC OPERATION
     Dosage: 10 MG (10 MG, 1 IN 1 D)
     Dates: start: 20020806
  2. BEXTRA [Suspect]
     Indication: ROTATOR CUFF REPAIR
     Dosage: 10 MG (10 MG, 1 IN 1 D)
     Dates: start: 20020806

REACTIONS (2)
  - CARDIAC DISORDER [None]
  - MAJOR DEPRESSION [None]
